FAERS Safety Report 8307457-4 (Version None)
Quarter: 2012Q2

REPORT INFORMATION
  Report Type: 
  Country: None (occurrence: None)
  Receive Date: 20120424
  Receipt Date: 20081114
  Transmission Date: 20120825
  Serious: Yes (Death, Life-Threatening, Disabling)
  Sender: FDA-Public Use
  Company Number: US-TEVA-US024828

PATIENT
  Sex: Female

DRUGS (1)
  1. ACTIQ [Suspect]
     Indication: CANCER PAIN

REACTIONS (1)
  - NEOPLASM MALIGNANT [None]
